FAERS Safety Report 8732638 (Version 4)
Quarter: 2012Q4

REPORT INFORMATION
  Report Type: 
  Country: JP (occurrence: JP)
  Receive Date: 20120820
  Receipt Date: 20121116
  Transmission Date: 20130627
  Serious: Yes (Death, Life-Threatening, Hospitalization, Other)
  Sender: FDA-Public Use
  Company Number: JP-ROCHE-1102547

PATIENT
  Age: 64 None
  Sex: Male
  Weight: 73 kg

DRUGS (16)
  1. BEVACIZUMAB [Suspect]
     Indication: LUNG ADENOCARCINOMA METASTATIC
     Route: 041
     Dates: start: 20120229, end: 20120229
  2. PEMETREXED [Suspect]
     Indication: LUNG ADENOCARCINOMA METASTATIC
     Route: 042
  3. PEMETREXED [Suspect]
     Route: 042
     Dates: start: 20120229, end: 20120229
  4. CARBOPLATIN [Suspect]
     Indication: LUNG ADENOCARCINOMA METASTATIC
     Route: 041
     Dates: start: 20120229, end: 20120229
  5. OXYCODONE HYDROCHLORIDE [Suspect]
     Indication: CANCER PAIN
     Route: 065
     Dates: end: 201203
  6. DECADRON [Concomitant]
     Indication: PROPHYLAXIS OF NAUSEA AND VOMITING
     Route: 041
     Dates: start: 20120229, end: 20120305
  7. ALOXI [Concomitant]
     Indication: PROPHYLAXIS
     Route: 041
     Dates: start: 20120229, end: 20120229
  8. FLUITRAN [Concomitant]
     Route: 048
  9. ATELEC [Concomitant]
     Route: 048
  10. OLMETEC [Concomitant]
     Route: 048
  11. BAYASPIRIN [Concomitant]
     Route: 048
  12. CELECOX [Concomitant]
     Route: 048
  13. PANVITAN [Concomitant]
     Route: 048
  14. HYDROXOCOBALAMIN [Concomitant]
     Route: 065
     Dates: start: 20120222, end: 20120327
  15. FOLIC ACID [Concomitant]
  16. VITAMIN B12 [Concomitant]

REACTIONS (13)
  - Pneumonia aspiration [Fatal]
  - Pneumonia aspiration [Recovered/Resolved]
  - Haemoptysis [Unknown]
  - Oesophageal haemorrhage [Recovered/Resolved]
  - Sepsis [Recovered/Resolved]
  - Neoplasm progression [Unknown]
  - Bacteraemia [Recovered/Resolved]
  - Pneumothorax [Recovered/Resolved]
  - Delirium [Not Recovered/Not Resolved]
  - Oesophagobronchial fistula [Unknown]
  - Suicide attempt [Unknown]
  - Vomiting [Unknown]
  - Vomiting [Unknown]
